FAERS Safety Report 4899792-7 (Version None)
Quarter: 2006Q1

REPORT INFORMATION
  Report Type: 
  Country: None (occurrence: None)
  Receive Date: 20060113
  Receipt Date: 20050919
  Transmission Date: 20060701
  Serious: No
  Sender: FDA-Public Use
  Company Number: 2005SP002819

PATIENT
  Age: 46 Year
  Sex: Female
  Weight: 66.2252 kg

DRUGS (7)
  1. LUNESTA [Suspect]
     Indication: INSOMNIA
     Dosage: 3 MG;HS;ORAL
     Route: 048
     Dates: start: 20050701
  2. ZOLOFT [Concomitant]
  3. NEXIUM [Concomitant]
  4. RHINOCORT [Concomitant]
  5. DIPHENYDRAMINE [Concomitant]
  6. UNISOM [Concomitant]
  7. DIMENHYDRATE [Concomitant]

REACTIONS (3)
  - BALANCE DISORDER [None]
  - GAIT DISTURBANCE [None]
  - HANGOVER [None]
